FAERS Safety Report 4433283-2 (Version None)
Quarter: 2004Q3

REPORT INFORMATION
  Report Type: 
  Country: None (occurrence: None)
  Receive Date: 20040824
  Receipt Date: 20040806
  Transmission Date: 20050211
  Serious: Yes (Disabling)
  Sender: FDA-Public Use
  Company Number: B0342412A

PATIENT
  Age: 39 Year
  Sex: Female

DRUGS (4)
  1. EPIVIR [Suspect]
  2. STAVUDINE                      (STAVUDINE) [Suspect]
  3. INDINAVIR SULFATE                     (INDINAVIR SULFATE) [Suspect]
  4. NELFINAVIR MESYLATE               (NELFINAVIR MESYLATE) [Suspect]

REACTIONS (18)
  - ABDOMINAL PAIN [None]
  - ANOREXIA [None]
  - AREFLEXIA [None]
  - ASTHENIA [None]
  - DEMYELINATING POLYNEUROPATHY [None]
  - DIFFICULTY IN WALKING [None]
  - DYSARTHRIA [None]
  - DYSPNOEA [None]
  - FATIGUE [None]
  - HYPOTENSION [None]
  - LACTIC ACIDOSIS [None]
  - LOSS OF PROPRIOCEPTION [None]
  - NAUSEA [None]
  - TACHYCARDIA [None]
  - TACHYPNOEA [None]
  - VIBRATION TEST ABNORMAL [None]
  - VOMITING [None]
  - WEIGHT DECREASED [None]
